FAERS Safety Report 16690967 (Version 1)
Quarter: 2019Q3

REPORT INFORMATION
  Report Type: Spontaneous
  Country: ES (occurrence: ES)
  Receive Date: 20190812
  Receipt Date: 20190812
  Transmission Date: 20191004
  Serious: Yes (Life-Threatening, Hospitalization)
  Sender: FDA-Public Use
  Company Number: ES-009507513-1908ESP001779

PATIENT
  Age: 76 Year
  Sex: Male
  Weight: 100 kg

DRUGS (1)
  1. BCG LIVE [Suspect]
     Active Substance: BACILLUS CALMETTE-GUERIN SUBSTRAIN TICE LIVE ANTIGEN
     Indication: BLADDER CANCER STAGE 0, WITH CANCER IN SITU
     Dosage: UNK
     Route: 065
     Dates: start: 20190701, end: 20190708

REACTIONS (3)
  - Pyrexia [Recovering/Resolving]
  - Cystitis [Recovering/Resolving]
  - Acute hepatic failure [Recovering/Resolving]

NARRATIVE: CASE EVENT DATE: 201907
